FAERS Safety Report 9330875 (Version 1)
Quarter: 2013Q2

REPORT INFORMATION
  Report Type: Spontaneous
  Country: US (occurrence: None)
  Receive Date: 20130531
  Receipt Date: 20130531
  Transmission Date: 20140414
  Serious: Yes (Other)
  Sender: FDA-Public Use
  Company Number: CA-ALSI-201300129

PATIENT
  Age: 16 Week
  Sex: Male

DRUGS (2)
  1. NITROUS OXIDE [Suspect]
     Route: 055
  2. OXYGEN [Suspect]

REACTIONS (2)
  - Circulatory collapse [None]
  - Electrocardiogram abnormal [None]
